FAERS Safety Report 8243612-X (Version None)
Quarter: 2012Q1

REPORT INFORMATION
  Report Type: 
  Country: None (occurrence: None)
  Receive Date: 20120329
  Receipt Date: 20120321
  Transmission Date: 20120608
  Serious: Yes (Other)
  Sender: FDA-Public Use
  Company Number: US-BAYER-2011-117096

PATIENT
  Age: 24 Year
  Sex: Female
  Weight: 83.9 kg

DRUGS (8)
  1. IMITREX [Concomitant]
     Indication: HEADACHE
     Dosage: 100 MG, Q2HR
     Route: 048
  2. TOPAMAX [Concomitant]
     Dosage: 26 MG, BID
     Route: 048
  3. DROSPIRENONE AND ETHINYL ESTRADIOL [Suspect]
     Dosage: UNK
     Route: 048
     Dates: start: 20080101, end: 20090101
  4. HUMALOG [Concomitant]
     Dosage: 5-10 UNITS AFTER EATING
     Route: 058
     Dates: start: 20091203
  5. INSULIN HUMAN [Concomitant]
     Indication: TYPE 1 DIABETES MELLITUS
     Dosage: 1 ML, UNK
     Route: 058
     Dates: start: 20000101
  6. LANTUS [Concomitant]
     Dosage: 45 UNITS
     Route: 058
     Dates: start: 20091203
  7. METFORMIN HCL [Concomitant]
     Dosage: 1 MG, BID
     Dates: start: 20091203
  8. METFORMIN HCL [Concomitant]
     Indication: TYPE 1 DIABETES MELLITUS
     Dosage: 1 MG, BID
     Route: 048
     Dates: start: 20000101

REACTIONS (3)
  - CHOLECYSTITIS ACUTE [None]
  - PAIN [None]
  - GALLBLADDER DISORDER [None]
